FAERS Safety Report 6506721-9 (Version None)
Quarter: 2009Q4

REPORT INFORMATION
  Report Type: 
  Country: None (occurrence: None)
  Receive Date: 20091221
  Receipt Date: 20091210
  Transmission Date: 20100525
  Serious: Yes (Death)
  Sender: FDA-Public Use
  Company Number: JP-ROCHE-675075

PATIENT
  Age: 40 Year
  Sex: Male

DRUGS (2)
  1. TAMIFLU [Suspect]
     Indication: INFLUENZA
     Route: 048
     Dates: start: 20091203
  2. ANTIBIOTIC NOS [Concomitant]
     Dosage: DRUG: OTHER ANTIBIOTIC PREPARATIONS (INCLUDING MIXED ANTIBIOTIC)
     Route: 065
     Dates: start: 20091203

REACTIONS (2)
  - PNEUMONIA INFLUENZAL [None]
  - RESPIRATORY FAILURE [None]
